FAERS Safety Report 10410922 (Version 1)
Quarter: 2014Q2

REPORT INFORMATION
  Report Type: Spontaneous
  Country: US (occurrence: None)
  Receive Date: 20140604
  Receipt Date: 20140604
  Transmission Date: 20141212
  Serious: Yes (Other)
  Sender: FDA-Public Use
  Company Number: 20100429CINRY1470

PATIENT
  Age: 38 Year
  Sex: Female

DRUGS (4)
  1. CINRYZE [Suspect]
     Indication: HEREDITARY ANGIOEDEMA
     Dosage: 1000 UNIT, 1 IN 4 D
     Route: 042
     Dates: start: 200809
  2. CINRYZE [Suspect]
     Indication: PROPHYLAXIS
     Dosage: 1000 UNIT, 1 IN 4 D
     Route: 042
     Dates: start: 200809
  3. FIORICET [Suspect]
     Indication: HEADACHE
     Dosage: 2-3 DOSES PER DAY
     Dates: start: 20100426
  4. COUMADIN (WARFARIN SODIUM) [Concomitant]

REACTIONS (13)
  - Abdominal pain [None]
  - Dizziness [None]
  - Altered visual depth perception [None]
  - Nausea [None]
  - Headache [None]
  - Pyrexia [None]
  - Sinusitis [None]
  - Lower respiratory tract infection [None]
  - Lower respiratory tract infection [None]
  - Fatigue [None]
  - Photosensitivity reaction [None]
  - Angioedema [None]
  - Hereditary angioedema [None]
